FAERS Safety Report 9407659 (Version 2)
Quarter: 2013Q3

REPORT INFORMATION
  Report Type: Spontaneous
  Country: US (occurrence: US)
  Receive Date: 20130718
  Receipt Date: 20130807
  Transmission Date: 20140515
  Serious: No
  Sender: FDA-Public Use
  Company Number: US-PFIZER INC-2013206741

PATIENT
  Age: 57 Year
  Sex: Male

DRUGS (1)
  1. INLYTA [Suspect]
     Dosage: 5 MG, 1X/DAY
     Dates: start: 201305

REACTIONS (3)
  - Malaise [Unknown]
  - Nausea [Unknown]
  - Blood calcium increased [Unknown]
